FAERS Safety Report 5708795-1 (Version None)
Quarter: 2008Q2

REPORT INFORMATION
  Report Type: 
  Country: None (occurrence: None)
  Receive Date: 20080417
  Receipt Date: 20080410
  Transmission Date: 20081010
  Serious: Yes (Other)
  Sender: FDA-Public Use
  Company Number: GB-MERCK-0804GBR00064

PATIENT
  Age: 84 Year
  Sex: Female

DRUGS (11)
  1. JANUVIA [Suspect]
     Indication: DIABETES MELLITUS
     Route: 048
     Dates: start: 20080301
  2. CLOBAZAM [Concomitant]
     Route: 065
  3. VALPROATE MAGNESIUM [Concomitant]
     Route: 065
  4. FUROSEMIDE [Concomitant]
     Route: 065
  5. LEVOTHYROXINE SODIUM [Concomitant]
     Route: 065
  6. DILTIAZEM HYDROCHLORIDE [Concomitant]
     Route: 065
  7. VALSARTAN [Concomitant]
     Route: 065
  8. LORATADINE [Concomitant]
     Route: 065
  9. PANTOPRAZOLE [Concomitant]
     Route: 065
  10. ASPIRIN [Concomitant]
     Route: 065
  11. SIMVASTATIN [Concomitant]
     Route: 065

REACTIONS (2)
  - CONVULSION [None]
  - OVERDOSE [None]
